FAERS Safety Report 23529706 (Version 7)
Quarter: 2025Q1

REPORT INFORMATION
  Report Type: Spontaneous
  Country: US (occurrence: US)
  Receive Date: 20240216
  Receipt Date: 20250331
  Transmission Date: 20250408
  Serious: Yes (Other)
  Sender: SANOFI AVENTIS
  Company Number: US-SANOFI-01934565

PATIENT
  Age: 77 Year
  Sex: Male

DRUGS (7)
  1. APIDRA [Suspect]
     Active Substance: INSULIN GLULISINE
     Indication: Type 1 diabetes mellitus
     Route: 065
     Dates: end: 2017
  2. NOVOLOG [Concomitant]
     Active Substance: INSULIN ASPART
  3. LEVEMIR [Concomitant]
     Active Substance: INSULIN DETEMIR
  4. TOUJEO [Concomitant]
     Active Substance: INSULIN GLARGINE
  5. FIASP [Concomitant]
     Active Substance: INSULIN ASPART
  6. LANTUS [Concomitant]
     Active Substance: INSULIN GLARGINE
  7. ADMELOG [Concomitant]
     Active Substance: INSULIN LISPRO

REACTIONS (4)
  - Pancreatic carcinoma [Unknown]
  - Blood glucose increased [Unknown]
  - Therapeutic response delayed [Unknown]
  - Product storage error [Unknown]
